FAERS Safety Report 4318567-0 (Version None)
Quarter: 2004Q1

REPORT INFORMATION
  Report Type: 
  Country: None (occurrence: None)
  Receive Date: 20040315
  Receipt Date: 20040309
  Transmission Date: 20041129
  Serious: Yes (Life-Threatening)
  Sender: FDA-Public Use
  Company Number: 2002100416JP

PATIENT
  Age: 67 Year
  Sex: Male
  Weight: 44 kg

DRUGS (13)
  1. ZYVOX [Suspect]
     Indication: BLOOD CULTURE POSITIVE
     Dosage: 600 MG, BID, IV
     Route: 042
     Dates: start: 20020219, end: 20020304
  2. MEROPENEM (MEROPENEM) [Concomitant]
  3. NAFAMOSTAT MESILATE (NAFAMOSTAT MESILATE) [Concomitant]
  4. THROMBIN LOCAL SOLUTION [Concomitant]
  5. FAMOTIDINE [Concomitant]
  6. FUROSEMIDE [Concomitant]
  7. DOPAMINE HCL [Concomitant]
  8. MORPHINE [Concomitant]
  9. GEMCITABINE HYDROCHLORIDE (GEMCITABINE HYDROCHLORIDE) [Concomitant]
  10. URINASTATIN (URINASTATIN) [Concomitant]
  11. CEFOPERAZONE SODIUM/SULBACTAM SODIUM (CEFOPERAZONE SODIUM, SULBACTAM S [Concomitant]
  12. GENTAMICIN SULFATE [Concomitant]
  13. CLINDAMYCIN HCL [Concomitant]

REACTIONS (12)
  - ALANINE AMINOTRANSFERASE ABNORMAL [None]
  - ANAEMIA [None]
  - ASPARTATE AMINOTRANSFERASE ABNORMAL [None]
  - ASPIRATION [None]
  - ATELECTASIS [None]
  - BLOOD ALKALINE PHOSPHATASE ABNORMAL [None]
  - BLOOD UREA ABNORMAL [None]
  - C-REACTIVE PROTEIN INCREASED [None]
  - DISSEMINATED INTRAVASCULAR COAGULATION [None]
  - GASTROINTESTINAL HAEMORRHAGE [None]
  - TRACHEAL OBSTRUCTION [None]
  - URINE OUTPUT DECREASED [None]
